FAERS Safety Report 6479205-4 (Version None)
Quarter: 2009Q4

REPORT INFORMATION
  Report Type: 
  Country: None (occurrence: None)
  Receive Date: 20091207
  Receipt Date: 20090217
  Transmission Date: 20100525
  Serious: No
  Sender: FDA-Public Use
  Company Number: US-AMGEN-KDL334204

PATIENT
  Sex: Male

DRUGS (2)
  1. ENBREL [Suspect]
     Indication: PSORIATIC ARTHROPATHY
     Route: 058
     Dates: start: 20090116
  2. METHOTREXATE [Concomitant]
     Route: 048
     Dates: start: 20090201

REACTIONS (5)
  - CHILLS [None]
  - COUGH [None]
  - DYSPEPSIA [None]
  - NASAL CONGESTION [None]
  - NASOPHARYNGITIS [None]
